FAERS Safety Report 8577423-2 (Version None)
Quarter: 2012Q3

REPORT INFORMATION
  Report Type: 
  Country: None (occurrence: None)
  Receive Date: 20120725
  Receipt Date: 20120713
  Transmission Date: 20120928
  Serious: Yes (Hospitalization)
  Sender: FDA-Public Use
  Company Number: 2012MA008917

PATIENT
  Age: 23 Year
  Sex: Female

DRUGS (1)
  1. DICLOFENAC SODIUM [Suspect]
     Dosage: ; PO
     Route: 048
     Dates: start: 20071120

REACTIONS (18)
  - HEPATIC CYST [None]
  - TYPE 1 DIABETES MELLITUS [None]
  - MUSCULOSKELETAL PAIN [None]
  - HAEMOPTYSIS [None]
  - DRUG INTOLERANCE [None]
  - DYSPEPSIA [None]
  - CONDITION AGGRAVATED [None]
  - COUGH [None]
  - DUODENAL ULCER PERFORATION [None]
  - OVERDOSE [None]
  - IMPAIRED WORK ABILITY [None]
  - ARTHRALGIA [None]
  - OSTEOCHONDROSIS [None]
  - WEIGHT LOSS POOR [None]
  - DRUG INEFFECTIVE [None]
  - INFECTION [None]
  - VOMITING [None]
  - HEPATIC STEATOSIS [None]
